FAERS Safety Report 12574449 (Version 1)
Quarter: 2016Q3

REPORT INFORMATION
  Report Type: Spontaneous
  Country: US (occurrence: None)
  Receive Date: 20160719
  Receipt Date: 20160719
  Transmission Date: 20161109
  Serious: Yes (Hospitalization)
  Sender: FDA-Public Use
  Company Number: None

PATIENT
  Age: 61 Year
  Sex: Male
  Weight: 58.6 kg

DRUGS (2)
  1. CITALOPRAM [Suspect]
     Active Substance: CITALOPRAM HYDROBROMIDE
     Route: 048
     Dates: start: 20061212, end: 20160623
  2. LITHIUM. [Suspect]
     Active Substance: LITHIUM
     Route: 048
     Dates: start: 20060824, end: 20160623

REACTIONS (14)
  - Tremor [None]
  - Confusional state [None]
  - Respiratory failure [None]
  - Nausea [None]
  - Vomiting [None]
  - Hypercapnia [None]
  - Sinus tachycardia [None]
  - Blood pressure increased [None]
  - Movement disorder [None]
  - Serotonin syndrome [None]
  - Diarrhoea [None]
  - Ecchymosis [None]
  - Delirium [None]
  - Dehydration [None]

NARRATIVE: CASE EVENT DATE: 20160620
